FAERS Safety Report 4364333-X (Version None)
Quarter: 2004Q2

REPORT INFORMATION
  Report Type: 
  Country: None (occurrence: None)
  Receive Date: 20040525
  Receipt Date: 20031023
  Transmission Date: 20050107
  Serious: Yes (Death)
  Sender: FDA-Public Use
  Company Number: US-BRISTOL-MYERS SQUIBB COMPANY-12417499

PATIENT
  Age: 53 Year
  Sex: Male

DRUGS (3)
  1. CYTOXAN [Suspect]
     Indication: METASTATIC MALIGNANT MELANOMA
  2. METHOTREXATE [Suspect]
     Indication: METASTATIC MALIGNANT MELANOMA
  3. THALOMID [Suspect]
     Indication: METASTATIC MALIGNANT MELANOMA

REACTIONS (1)
  - METASTATIC MALIGNANT MELANOMA [None]
